FAERS Safety Report 8378574-8 (Version None)
Quarter: 2012Q2

REPORT INFORMATION
  Report Type: 
  Country: None (occurrence: None)
  Receive Date: 20120522
  Receipt Date: 20110829
  Transmission Date: 20120825
  Serious: No
  Sender: FDA-Public Use
  Company Number: US-ASTRAZENECA-2011SE52009

PATIENT

DRUGS (20)
  1. FUROSEMIDE [Concomitant]
     Indication: OEDEMA PERIPHERAL
  2. LEVOTHYROXINE SODIUM [Concomitant]
  3. TRAMADOL HCL [Concomitant]
     Indication: SCIATICA
  4. VIT D2 [Concomitant]
  5. DOC-Q-LACE [Concomitant]
     Indication: CONSTIPATION
  6. PREDNISONE [Concomitant]
     Indication: ARTHRALGIA
  7. OMEPRAZOLE [Suspect]
     Route: 048
  8. KLOR-CON [Concomitant]
  9. CLONAZEPAM [Concomitant]
  10. HYDROXYZINE PAM [Concomitant]
  11. FLUTICASONE PROPIONATE [Concomitant]
  12. CARBIDOPA + LEVODOPA [Concomitant]
  13. ROPINIROLE HYDROCHLORIDE [Concomitant]
     Indication: RESTLESS LEGS SYNDROME
  14. POTASSIUM CL [Concomitant]
  15. OMEPRAZOLE [Suspect]
     Indication: GASTROOESOPHAGEAL REFLUX DISEASE
     Route: 048
  16. RA LORATADINE [Concomitant]
     Indication: MULTIPLE ALLERGIES
  17. METHOCARBAMOL [Concomitant]
     Indication: MUSCLE SPASMS
  18. SEROQUEL [Suspect]
     Indication: BIPOLAR DISORDER
     Dosage: 100 MG THREE TABLETS BY MOUTH AT BEDTIME
     Route: 048
  19. LITHIUM CARBONATE [Concomitant]
  20. RA VITAMIN D [Concomitant]
     Indication: VITAMIN D DEFICIENCY

REACTIONS (8)
  - SCIATICA [None]
  - ARTHRALGIA [None]
  - OEDEMA PERIPHERAL [None]
  - MUSCLE SPASMS [None]
  - CONSTIPATION [None]
  - MULTIPLE ALLERGIES [None]
  - VITAMIN D DEFICIENCY [None]
  - RESTLESS LEGS SYNDROME [None]
